FAERS Safety Report 19257296 (Version 1)
Quarter: 2021Q2

REPORT INFORMATION
  Report Type: Spontaneous
  Country: US (occurrence: US)
  Receive Date: 20210514
  Receipt Date: 20210514
  Transmission Date: 20210717
  Serious: No
  Sender: FDA-Public Use
  Company Number: US-GLAXOSMITHKLINE-USCH2021028118

PATIENT
  Age: 64 Year
  Sex: Female

DRUGS (4)
  1. ADVIL PM [Suspect]
     Active Substance: DIPHENHYDRAMINE CITRATE\IBUPROFEN
     Indication: ARTHRALGIA
  2. ADVIL [Suspect]
     Active Substance: IBUPROFEN
     Indication: PAIN IN EXTREMITY
     Dosage: UNK
     Dates: start: 20210510, end: 20210510
  3. ADVIL [Suspect]
     Active Substance: IBUPROFEN
     Indication: ARTHRALGIA
  4. ADVIL PM [Suspect]
     Active Substance: DIPHENHYDRAMINE CITRATE\IBUPROFEN
     Indication: PAIN IN EXTREMITY
     Dosage: UNK
     Dates: start: 20210510, end: 20210510

REACTIONS (3)
  - Product administration error [Unknown]
  - Feeling abnormal [Unknown]
  - Drug ineffective [Unknown]
